FAERS Safety Report 21989340 (Version 1)
Quarter: 2023Q1

REPORT INFORMATION
  Report Type: Spontaneous
  Country: US (occurrence: US)
  Receive Date: 20230214
  Receipt Date: 20230214
  Transmission Date: 20230417
  Serious: No
  Sender: FDA-Public Use
  Company Number: US-LEO Pharma-349083

PATIENT
  Age: 54 Year
  Sex: Female

DRUGS (2)
  1. FINACEA [Concomitant]
     Active Substance: AZELAIC ACID
     Indication: Acne
  2. AZELAIC ACID [Suspect]
     Active Substance: AZELAIC ACID
     Indication: Acne

REACTIONS (2)
  - Cyst [Unknown]
  - Product use in unapproved indication [Unknown]
